FAERS Safety Report 7974461-5 (Version None)
Quarter: 2011Q4

REPORT INFORMATION
  Report Type: 
  Country: None (occurrence: None)
  Receive Date: 20111213
  Receipt Date: 20111205
  Transmission Date: 20120403
  Serious: Yes (Hospitalization)
  Sender: FDA-Public Use
  Company Number: US-B.I. PHARMACEUTICALS,INC./RIDGEFIELD-2011-BP-25441BP

PATIENT
  Age: 60 Year
  Sex: Male
  Weight: 81.8 kg

DRUGS (4)
  1. CITALOPRAM [Concomitant]
  2. METOPROLOL TARTRATE [Concomitant]
     Dates: start: 20110413
  3. PRADAXA [Suspect]
     Indication: ATRIAL FIBRILLATION
     Dosage: 300 MG
     Route: 048
  4. CRESTOR [Concomitant]
     Dates: start: 20110401

REACTIONS (2)
  - HAEMOPTYSIS [None]
  - PULMONARY HAEMORRHAGE [None]
